FAERS Safety Report 8031809-3 (Version None)
Quarter: 2012Q1

REPORT INFORMATION
  Report Type: 
  Country: None (occurrence: None)
  Receive Date: 20120109
  Receipt Date: 20120105
  Transmission Date: 20120608
  Serious: Yes (Death)
  Sender: FDA-Public Use
  Company Number: US-CELGENEUS-163-21880-11120929

PATIENT
  Sex: Male

DRUGS (12)
  1. REVLIMID [Suspect]
     Indication: MULTIPLE MYELOMA
     Dosage: 25 MILLIGRAM
     Route: 048
     Dates: start: 20111010
  2. IBUPROFEN [Concomitant]
     Route: 065
  3. METFORMIN HCL [Concomitant]
     Route: 065
  4. ZOCOR [Concomitant]
     Route: 065
  5. LORAZEPAM [Concomitant]
     Route: 065
  6. MULTI FOR HIM [Concomitant]
     Route: 065
  7. DILAUDID [Concomitant]
     Route: 065
  8. ASPIR-81 [Concomitant]
     Route: 065
  9. OMEPRAZOLE [Concomitant]
     Route: 065
  10. NEURONTIN [Concomitant]
     Route: 065
  11. FUROSEMIDE [Concomitant]
     Route: 065
  12. CYMBALTA [Concomitant]
     Route: 065

REACTIONS (1)
  - CARDIAC ARREST [None]
